FAERS Safety Report 11732508 (Version 2)
Quarter: 2015Q4

REPORT INFORMATION
  Report Type: Spontaneous
  Country: US (occurrence: US)
  Receive Date: 20151113
  Receipt Date: 20151116
  Transmission Date: 20160304
  Serious: Yes (Other)
  Sender: FDA-Public Use
  Company Number: US-ROCHE-1634000

PATIENT
  Age: 68 Year
  Sex: Male
  Weight: 83.99 kg

DRUGS (1)
  1. ESBRIET [Suspect]
     Active Substance: PIRFENIDONE
     Indication: IDIOPATHIC PULMONARY FIBROSIS
     Dosage: TAKE 3 CAPSULES BY MOUTH THREE TIMES A DAY WITH FOOD
     Route: 048
     Dates: start: 20150706

REACTIONS (8)
  - Abdominal discomfort [Unknown]
  - Malaise [Unknown]
  - Decreased appetite [Unknown]
  - Extra dose administered [Unknown]
  - Nausea [Not Recovered/Not Resolved]
  - Overdose [Unknown]
  - Prostatic specific antigen increased [Unknown]
  - Type 2 diabetes mellitus [Unknown]

NARRATIVE: CASE EVENT DATE: 20150914
